FAERS Safety Report 25151261 (Version 2)
Quarter: 2025Q2

REPORT INFORMATION
  Report Type: Spontaneous
  Country: US (occurrence: US)
  Receive Date: 20250402
  Receipt Date: 20250424
  Transmission Date: 20250716
  Serious: No
  Sender: PFIZER
  Company Number: US-PFIZER INC-202500070620

PATIENT
  Age: 62 Year
  Sex: Female

DRUGS (4)
  1. METHOTREXATE SODIUM [Suspect]
     Active Substance: METHOTREXATE SODIUM
  2. JARDIANCE [Concomitant]
     Active Substance: EMPAGLIFLOZIN
  3. ENBREL [Concomitant]
     Active Substance: ETANERCEPT
     Indication: Rheumatoid arthritis
     Dosage: 50 MG, 1X/DAY
     Route: 065
     Dates: start: 20250324
  4. ENBREL [Concomitant]
     Active Substance: ETANERCEPT
     Dosage: 50 MG, 1X/DAY
     Route: 065

REACTIONS (4)
  - Drug ineffective [Unknown]
  - Brain fog [Unknown]
  - Asthenia [Unknown]
  - Condition aggravated [Unknown]
